FAERS Safety Report 5794634-X (Version None)
Quarter: 2008Q2

REPORT INFORMATION
  Report Type: 
  Country: None (occurrence: None)
  Receive Date: 20080625
  Receipt Date: 20080617
  Transmission Date: 20081010
  Serious: Yes (Hospitalization, Other)
  Sender: FDA-Public Use
  Company Number: 2008SP008944

PATIENT
  Age: 67 Year
  Sex: Male

DRUGS (3)
  1. TEMODAL [Suspect]
     Indication: ASTROCYTOMA
     Dosage: PO
     Route: 048
     Dates: start: 20071105, end: 20080416
  2. COTRIM [Concomitant]
  3. TAMSULOSIN HCL [Concomitant]

REACTIONS (8)
  - BEHCET'S SYNDROME [None]
  - BONE MARROW FAILURE [None]
  - CEREBRAL DISORDER [None]
  - LEUKOPENIA [None]
  - MONONEUROPATHY MULTIPLEX [None]
  - NERVE ROOT LESION [None]
  - PARAPARESIS [None]
  - SPINAL OSTEOARTHRITIS [None]
